FAERS Safety Report 9778084 (Version 3)
Quarter: 2015Q3

REPORT INFORMATION
  Report Type: Report from Study
  Country: ES (occurrence: ES)
  Receive Date: 20131223
  Receipt Date: 20150731
  Transmission Date: 20151125
  Serious: Yes (Death, Hospitalization, Other)
  Sender: FDA-Public Use
  Company Number: ES-ROCHE-1317338

PATIENT

DRUGS (7)
  1. TELAPREVIR [Suspect]
     Active Substance: TELAPREVIR
     Indication: HEPATITIS C
     Route: 065
  2. ETRAVIRINE [Concomitant]
     Active Substance: ETRAVIRINE
  3. PEG-INTERFERON ALFA 2A [Suspect]
     Active Substance: PEGINTERFERON ALFA-2A
     Indication: HEPATITIS C
     Route: 065
  4. RIBAVIRIN. [Suspect]
     Active Substance: RIBAVIRIN
     Indication: HEPATITIS C
     Route: 065
  5. PEGINTERFERON ALFA-2B [Suspect]
     Active Substance: PEGINTERFERON ALFA-2B
     Indication: HEPATITIS C
     Route: 065
  6. RALTEGRAVIR. [Concomitant]
     Active Substance: RALTEGRAVIR
  7. ATAZANAVIR [Concomitant]
     Active Substance: ATAZANAVIR

REACTIONS (7)
  - Haemoglobin abnormal [Unknown]
  - Death [Fatal]
  - Neutropenia [Unknown]
  - Hepatic failure [Unknown]
  - Bacterial infection [Unknown]
  - Platelet disorder [Unknown]
  - Treatment failure [Unknown]
